FAERS Safety Report 25044350 (Version 1)
Quarter: 2025Q1

REPORT INFORMATION
  Report Type: Spontaneous
  Country: CA (occurrence: CA)
  Receive Date: 20250306
  Receipt Date: 20250306
  Transmission Date: 20250408
  Serious: Yes (Other)
  Sender: CSL BEHRING
  Company Number: CA-BEH-2025197300

PATIENT
  Age: 21 Year
  Sex: Female
  Weight: 102 kg

DRUGS (1)
  1. PRIVIGEN [Suspect]
     Active Substance: HUMAN IMMUNOGLOBULIN G
     Indication: Immunodeficiency
     Dosage: 30 G, QMT
     Route: 042

REACTIONS (12)
  - Allergic transfusion reaction [Recovered/Resolved]
  - Blood pressure systolic increased [Recovered/Resolved]
  - Dyspnoea [Recovered/Resolved]
  - Erythema [Recovered/Resolved]
  - Feeling hot [Recovered/Resolved]
  - Headache [Recovered/Resolved]
  - Heart rate increased [Recovered/Resolved]
  - Nausea [Recovered/Resolved]
  - Respiratory rate increased [Recovered/Resolved]
  - Somnolence [Recovered/Resolved]
  - Transfusion reaction [Recovered/Resolved]
  - Urticaria [Recovered/Resolved]
